FAERS Safety Report 16664950 (Version 1)
Quarter: 2019Q3

REPORT INFORMATION
  Report Type: Spontaneous
  Country: FR (occurrence: FR)
  Receive Date: 20190803
  Receipt Date: 20190803
  Transmission Date: 20191004
  Serious: Yes (Other)
  Sender: FDA-Public Use
  Company Number: FR-AUROBINDO-AUR-APL-2019-043459

PATIENT

DRUGS (6)
  1. ENGERIX-B [Suspect]
     Active Substance: HEPATITIS B VIRUS SUBTYPE ADW2 HBSAG SURFACE PROTEIN ANTIGEN
     Indication: IMMUNISATION
     Dosage: 1 DOSAGE FORM, 1 TOTAL
     Route: 065
     Dates: start: 20190615, end: 20190615
  2. HUMAN HEPATITIS B IMMUNOGLOBULIN [Suspect]
     Active Substance: HUMAN HEPATITIS B VIRUS IMMUNE GLOBULIN
     Indication: IMMUNISATION
     Dosage: 500 INTERNATIONAL UNIT, 1 TOTAL
     Route: 042
     Dates: start: 20190615, end: 20190615
  3. ACTHIB [Suspect]
     Active Substance: HAEMOPHILUS B CONJUGATE VACCINE (TETANUS TOXOID CONJUGATE)\HAEMOPHILUS INFLUENZAE TYPE B STRAIN 1482 CAPSULAR POLYSACCHARIDE TETANUS TOXOID CONJUGATE ANTIGEN
     Indication: IMMUNISATION
     Dosage: 1 DOSAGE FORM, 1 TOTAL
     Route: 065
     Dates: start: 20190614, end: 20190614
  4. PREVNAR 13 [Suspect]
     Active Substance: PNEUMOCOCCAL 13-VALENT CONJUGATE VACCINE
     Indication: IMMUNISATION
     Dosage: 1 DOSAGE FORM, 1 TOTAL
     Route: 065
     Dates: start: 20190615, end: 20190615
  5. PANTOPRAZOLE ARROW GASTRO-RESISTANT TABLET 20MG [Suspect]
     Active Substance: PANTOPRAZOLE SODIUM
     Indication: PROPHYLAXIS
     Dosage: 20 MILLIGRAM, ONCE A DAY
     Route: 048
     Dates: start: 20190614, end: 20190628
  6. SEVELAMER CARBONATE. [Suspect]
     Active Substance: SEVELAMER CARBONATE
     Indication: RENAL FAILURE
     Dosage: 1600 MILLIGRAM, ONCE A DAY
     Route: 048
     Dates: start: 20190617, end: 20190625

REACTIONS (1)
  - Thrombocytopenia [Recovered/Resolved]

NARRATIVE: CASE EVENT DATE: 20190625
